FAERS Safety Report 15484431 (Version 1)
Quarter: 2018Q4

REPORT INFORMATION
  Report Type: Spontaneous
  Country: ES (occurrence: ES)
  Receive Date: 20181010
  Receipt Date: 20181010
  Transmission Date: 20190205
  Serious: Yes (Other)
  Sender: FDA-Public Use
  Company Number: ES-JNJFOC-20181007003

PATIENT
  Age: 86 Year
  Sex: Female
  Weight: 56 kg

DRUGS (4)
  1. RISPERIDONE. [Suspect]
     Active Substance: RISPERIDONE
     Indication: PSYCHOTIC DISORDER
     Route: 048
     Dates: start: 20180416, end: 20180502
  2. CLOMETIAZOLE [Interacting]
     Active Substance: CLOMETHIAZOLE
     Indication: AGITATION
     Route: 048
     Dates: start: 20180430, end: 20180502
  3. SERTRALINE [Concomitant]
     Active Substance: SERTRALINE HYDROCHLORIDE
     Indication: DEPRESSION
     Route: 048
     Dates: start: 20180416, end: 20180427
  4. DIAZEPAM. [Interacting]
     Active Substance: DIAZEPAM
     Indication: ANXIETY
     Route: 048
     Dates: start: 20180101, end: 20180503

REACTIONS (3)
  - Drug interaction [Unknown]
  - Depressed level of consciousness [Recovered/Resolved]
  - Leukopenia [Recovered/Resolved]

NARRATIVE: CASE EVENT DATE: 20180416
